FAERS Safety Report 8236390-1 (Version None)
Quarter: 2012Q1

REPORT INFORMATION
  Report Type: 
  Country: None (occurrence: None)
  Receive Date: 20120327
  Receipt Date: 20120321
  Transmission Date: 20120608
  Serious: No
  Sender: FDA-Public Use
  Company Number: US-PFIZER INC-2012074003

PATIENT
  Sex: Female
  Weight: 77.098 kg

DRUGS (4)
  1. LINSEED OIL [Concomitant]
     Indication: BLOOD CHOLESTEROL ABNORMAL
     Dosage: UNK
  2. LYRICA [Suspect]
     Indication: MALAISE
     Dosage: 100 MG, 3X/DAY
     Route: 048
     Dates: start: 20110101
  3. PRILOSEC [Concomitant]
     Indication: GASTROOESOPHAGEAL REFLUX DISEASE
     Dosage: 20 MG, DAILY
  4. VIVELLE-DOT [Concomitant]
     Indication: OESTROGEN THERAPY
     Dosage: UNK
     Route: 062

REACTIONS (1)
  - WEIGHT INCREASED [None]
